FAERS Safety Report 18321856 (Version 2)
Quarter: 2022Q3

REPORT INFORMATION
  Report Type: Spontaneous
  Country: GB (occurrence: None)
  Receive Date: 20200928
  Receipt Date: 20220801
  Transmission Date: 20221027
  Serious: Yes (Hospitalization)
  Sender: FDA-Public Use
  Company Number: GB-ROCHE-2686456

PATIENT
  Sex: Female

DRUGS (2)
  1. TOCILIZUMAB [Suspect]
     Active Substance: TOCILIZUMAB
     Indication: Autoimmune retinopathy
     Route: 058
  2. OMEPRAZOLE [Concomitant]
     Active Substance: OMEPRAZOLE

REACTIONS (3)
  - Malaise [Unknown]
  - Therapy cessation [Unknown]
  - Liver disorder [Unknown]
